FAERS Safety Report 6240320-1 (Version None)
Quarter: 2009Q2

REPORT INFORMATION
  Report Type: 
  Country: None (occurrence: None)
  Receive Date: 20090623
  Receipt Date: 20081215
  Transmission Date: 20091009
  Serious: No
  Sender: FDA-Public Use
  Company Number: US-ASTRAZENECA-2008UW13799

PATIENT
  Age: 46 Year
  Sex: Female
  Weight: 95.3 kg

DRUGS (3)
  1. PULMICORT RESPULES [Suspect]
     Indication: COUGH
     Route: 055
     Dates: start: 20080708
  2. PULMICORT RESPULES [Suspect]
     Indication: SINUS CONGESTION
     Route: 055
     Dates: start: 20080708
  3. STEROID NASAL SPRAY [Concomitant]

REACTIONS (4)
  - INCORRECT ROUTE OF DRUG ADMINISTRATION [None]
  - MEDICATION ERROR [None]
  - PRURITUS [None]
  - RASH [None]
